FAERS Safety Report 10670751 (Version 1)
Quarter: 2014Q4

REPORT INFORMATION
  Report Type: Spontaneous
  Country: NO (occurrence: ES)
  Receive Date: 20141223
  Receipt Date: 20141223
  Transmission Date: 20150529
  Serious: Yes (Hospitalization)
  Sender: FDA-Public Use
  Company Number: NO-JNJFOC-20141212545

PATIENT
  Age: 71 Year
  Sex: Female

DRUGS (5)
  1. GLIVEC [Concomitant]
     Active Substance: IMATINIB MESYLATE
     Indication: CHRONIC MYELOID LEUKAEMIA
     Route: 065
  2. XARELTO [Suspect]
     Active Substance: RIVAROXABAN
     Indication: THROMBOSIS PROPHYLAXIS
     Route: 048
     Dates: end: 20141030
  3. DIOVAN COMP [Concomitant]
     Indication: HYPERTENSION
     Route: 065
  4. OMEPRAZOLE. [Concomitant]
     Active Substance: OMEPRAZOLE
     Indication: GASTROOESOPHAGEAL REFLUX DISEASE
     Route: 065
  5. LOMIR SRO [Concomitant]
     Route: 065

REACTIONS (3)
  - Haemoglobin decreased [Recovering/Resolving]
  - Malaise [Unknown]
  - Feeling abnormal [Unknown]
